FAERS Safety Report 6255609-X (Version None)
Quarter: 2009Q3

REPORT INFORMATION
  Report Type: 
  Country: None (occurrence: None)
  Receive Date: 20090702
  Receipt Date: 20090625
  Transmission Date: 20100115
  Serious: Yes (Other)
  Sender: FDA-Public Use
  Company Number: GB-BAXTER-2009BH010796

PATIENT

DRUGS (2)
  1. LACTATED RINGER'S [Suspect]
     Indication: CARDIAC OPERATION
     Route: 065
  2. LACTATED RINGER'S [Suspect]
     Indication: OFF LABEL USE
     Route: 065

REACTIONS (3)
  - PROCEDURAL COMPLICATION [None]
  - PRODUCT DEPOSIT [None]
  - WRONG DRUG ADMINISTERED [None]
